FAERS Safety Report 14599935 (Version 1)
Quarter: 2018Q1

REPORT INFORMATION
  Report Type: Spontaneous
  Country: RU (occurrence: RU)
  Receive Date: 20180305
  Receipt Date: 20180305
  Transmission Date: 20180509
  Serious: Yes (Hospitalization)
  Sender: FDA-Public Use
  Company Number: RU-BAYER-2018-035677

PATIENT
  Age: 32 Year
  Sex: Female

DRUGS (1)
  1. YARINA PLUS [Suspect]
     Active Substance: DROSPIRENONE\ETHINYL ESTRADIOL\LEVOMEFOLATE CALCIUM
     Indication: CONTRACEPTION
     Dosage: 1 DF, QD
     Dates: start: 201711

REACTIONS (2)
  - Pulmonary embolism [None]
  - Pneumonia [None]

NARRATIVE: CASE EVENT DATE: 20180122
